FAERS Safety Report 6498188-4 (Version None)
Quarter: 2009Q4

REPORT INFORMATION
  Report Type: 
  Country: None (occurrence: None)
  Receive Date: 20091215
  Receipt Date: 20091130
  Transmission Date: 20100525
  Serious: Yes (Death)
  Sender: FDA-Public Use
  Company Number: GB-BAUSCH-2009BL005544

PATIENT
  Age: 38 Year
  Sex: Female
  Weight: 42 kg

DRUGS (3)
  1. ATROPINE [Suspect]
     Indication: MEDICATION ERROR
     Route: 042
     Dates: start: 20081202, end: 20081202
  2. ADRENALINE [Suspect]
     Indication: CARDIAC ARREST
     Route: 042
     Dates: start: 20081202, end: 20081202
  3. AMIODARONE HCL [Suspect]
     Indication: CARDIAC ARREST
     Route: 042
     Dates: start: 20081202, end: 20081202

REACTIONS (4)
  - CARDIAC ARREST [None]
  - PNEUMONIA [None]
  - UNRESPONSIVE TO STIMULI [None]
  - WRONG DRUG ADMINISTERED [None]
